FAERS Safety Report 4351404-7 (Version None)
Quarter: 2004Q2

REPORT INFORMATION
  Report Type: 
  Country: None (occurrence: None)
  Receive Date: 20040430
  Receipt Date: 20040430
  Transmission Date: 20050107
  Serious: Yes (Other)
  Sender: FDA-Public Use
  Company Number: None

PATIENT
  Sex: Male

DRUGS (2)
  1. PAXIL [Suspect]
     Indication: HEAD INJURY
     Dosage: 30 MG DLY PO
     Route: 048
  2. PAXIL [Suspect]
     Indication: PERSONALITY CHANGE
     Dosage: 30 MG DLY PO
     Route: 048

REACTIONS (3)
  - ANGER [None]
  - IRRITABILITY [None]
  - SEXUAL DYSFUNCTION [None]
